FAERS Safety Report 7707056-9 (Version None)
Quarter: 2011Q3

REPORT INFORMATION
  Report Type: 
  Country: None (occurrence: None)
  Receive Date: 20110824
  Receipt Date: 20110816
  Transmission Date: 20111222
  Serious: Yes (Life-Threatening, Hospitalization)
  Sender: FDA-Public Use
  Company Number: TW-JNJFOC-20110807493

PATIENT
  Sex: Male
  Weight: 53.1 kg

DRUGS (3)
  1. LORAZEPAM [Concomitant]
     Indication: INSOMNIA
     Dates: start: 20110222
  2. INVEGA SUSTENNA [Suspect]
     Indication: SCHIZOPHRENIA
     Route: 030
     Dates: start: 20110113, end: 20110712
  3. ARTANE [Concomitant]
     Indication: AKATHISIA
     Dates: start: 20110322

REACTIONS (1)
  - SUICIDE ATTEMPT [None]
